FAERS Safety Report 18291369 (Version 3)
Quarter: 2020Q4

REPORT INFORMATION
  Report Type: Report from Study
  Country: US (occurrence: US)
  Receive Date: 20200921
  Receipt Date: 20201007
  Transmission Date: 20210113
  Serious: Yes (Hospitalization)
  Sender: FDA-Public Use
  Company Number: US-EISAI MEDICAL RESEARCH-EC-2020-080634

PATIENT
  Age: 65 Year
  Sex: Male

DRUGS (1)
  1. LENVIMA [Suspect]
     Active Substance: LENVATINIB
     Indication: PRODUCT USED FOR UNKNOWN INDICATION
     Dosage: FREQUENCY UNKNOWN
     Route: 048
     Dates: start: 20200910

REACTIONS (6)
  - Dyspnoea [Recovering/Resolving]
  - Malignant neoplasm progression [Unknown]
  - Asthenia [Unknown]
  - Heart rate increased [Unknown]
  - Pyrexia [Recovering/Resolving]
  - Infection [Unknown]

NARRATIVE: CASE EVENT DATE: 202009
